FAERS Safety Report 9441615 (Version 2)
Quarter: 2013Q3

REPORT INFORMATION
  Report Type: Spontaneous
  Country: US (occurrence: US)
  Receive Date: 20130806
  Receipt Date: 20130830
  Transmission Date: 20140515
  Serious: Yes (Hospitalization)
  Sender: FDA-Public Use
  Company Number: US-AMGEN-USASP2013038727

PATIENT
  Age: 52 Year
  Sex: Female

DRUGS (1)
  1. ENBREL [Suspect]
     Indication: RHEUMATOID ARTHRITIS
     Dosage: 50 MG, QWK
     Route: 058
     Dates: start: 20130201

REACTIONS (4)
  - Limb operation [Recovered/Resolved]
  - Oedema peripheral [Recovering/Resolving]
  - Sinusitis [Recovered/Resolved]
  - Upper respiratory tract infection [Recovered/Resolved]
